FAERS Safety Report 19060835 (Version 4)
Quarter: 2022Q1

REPORT INFORMATION
  Report Type: Spontaneous
  Country: US (occurrence: PT)
  Receive Date: 20210326
  Receipt Date: 20220223
  Transmission Date: 20220423
  Serious: Yes (Death, Congenital Anomaly, Other)
  Sender: FDA-Public Use
  Company Number: PT-MACLEODS PHARMACEUTICALS US LTD-MAC2021030576

PATIENT

DRUGS (6)
  1. TENOFOVIR DISOPROXIL [Suspect]
     Active Substance: TENOFOVIR DISOPROXIL
     Indication: Product used for unknown indication
     Dosage: 245 MILLIGRAM, QD, ONE COURSE, PRIOR TO CONCEPTION, FIRST TRIMESTER
     Route: 064
  2. EMTRICITABINE [Suspect]
     Active Substance: EMTRICITABINE
     Indication: Product used for unknown indication
     Dosage: 200 MILLIGRAM, QD, ONE COURSE, PRIOR TO CONCEPTION, FIRST TRIMESTER
     Route: 064
  3. TIVICAY [Suspect]
     Active Substance: DOLUTEGRAVIR SODIUM
     Indication: Product used for unknown indication
     Dosage: 50 MILLIGRAM, QD, PRIOR TO CONCEPTION, FIRST TRIMESTER
     Route: 064
  4. DESMOPRESSIN [Suspect]
     Active Substance: DESMOPRESSIN
     Indication: Product used for unknown indication
     Dosage: 0.06 MILLIGRAM, BID, INCREASE DESMOPRESSIN DOSAGE, 2ND TRIMESTERORAL
     Route: 064
  5. DESMOPRESSIN [Suspect]
     Active Substance: DESMOPRESSIN
     Dosage: UNK UNK, BID, 0.06 MILLIGRAM, BID, INCREASE DESMOPRESSIN DOSAGE, 2ND TRIMESTER
     Route: 064
  6. SALINE [Suspect]
     Active Substance: SODIUM CHLORIDE
     Indication: Product used for unknown indication
     Dosage: UNK, SECOND TRIMESTER
     Route: 064

REACTIONS (3)
  - Pulmonary hypoplasia [Fatal]
  - Foetal growth restriction [Fatal]
  - Foetal exposure during pregnancy [Unknown]
